FAERS Safety Report 11432090 (Version 2)
Quarter: 2015Q3

REPORT INFORMATION
  Report Type: Spontaneous
  Country: US (occurrence: US)
  Receive Date: 20150828
  Receipt Date: 20150925
  Transmission Date: 20151125
  Serious: Yes (Other)
  Sender: FDA-Public Use
  Company Number: US-PFIZER INC-2015283931

PATIENT
  Age: 44 Year
  Sex: Female

DRUGS (1)
  1. SERTRALINE HCL [Suspect]
     Active Substance: SERTRALINE HYDROCHLORIDE
     Dosage: UNK

REACTIONS (8)
  - Mood swings [Unknown]
  - Panic attack [Unknown]
  - Suicidal ideation [Unknown]
  - Intentional self-injury [Unknown]
  - Hostility [Unknown]
  - Feeling abnormal [Unknown]
  - Crying [Unknown]
  - Hallucination, auditory [Unknown]
